FAERS Safety Report 12865261 (Version 2)
Quarter: 2016Q4

REPORT INFORMATION
  Report Type: Report from Study
  Country: US (occurrence: US)
  Receive Date: 20161020
  Receipt Date: 20161109
  Transmission Date: 20170207
  Serious: Yes (Hospitalization, Other)
  Sender: FDA-Public Use
  Company Number: US-JAZZ-2016-US-019921

PATIENT
  Age: 59 Year
  Sex: Female

DRUGS (11)
  1. PRILOSEC [Concomitant]
     Active Substance: OMEPRAZOLE MAGNESIUM
  2. GLUCOTROL [Concomitant]
     Active Substance: GLIPIZIDE
  3. LORATADINE. [Concomitant]
     Active Substance: LORATADINE
  4. FISH OIL [Concomitant]
     Active Substance: FISH OIL
  5. VITAMIN E                          /00110501/ [Concomitant]
     Active Substance: TOCOPHEROL
  6. CLOZAPINE ODT [Suspect]
     Active Substance: CLOZAPINE
     Indication: DYSKINESIA
     Dosage: 12.5 MG, QD
     Route: 048
     Dates: start: 20160810
  7. TRAZODONE [Concomitant]
     Active Substance: TRAZODONE HYDROCHLORIDE
  8. SERTRALINE [Concomitant]
     Active Substance: SERTRALINE HYDROCHLORIDE
  9. TROSPIUM                           /00376202/ [Concomitant]
  10. LANTUS [Concomitant]
     Active Substance: INSULIN GLARGINE
  11. CLOZAPINE ODT [Suspect]
     Active Substance: CLOZAPINE
     Dosage: 25 MG, QD
     Route: 048
     Dates: start: 201608

REACTIONS (6)
  - Urinary tract infection [Unknown]
  - Hyperglycaemia [Recovering/Resolving]
  - Post-traumatic stress disorder [Unknown]
  - Asthenia [Recovering/Resolving]
  - Major depression [Unknown]
  - Dizziness [Recovering/Resolving]

NARRATIVE: CASE EVENT DATE: 20160915
